FAERS Safety Report 14700986 (Version 1)
Quarter: 2018Q1

REPORT INFORMATION
  Report Type: Spontaneous
  Country: US (occurrence: US)
  Receive Date: 20180330
  Receipt Date: 20180330
  Transmission Date: 20180509
  Serious: Yes (Other)
  Sender: FDA-Public Use
  Company Number: US-JNJFOC-20180100555

PATIENT
  Sex: Female

DRUGS (1)
  1. INVOKANA [Suspect]
     Active Substance: CANAGLIFLOZIN
     Indication: PRODUCT USED FOR UNKNOWN INDICATION
     Route: 048

REACTIONS (5)
  - Staphylococcal osteomyelitis [Unknown]
  - Toe amputation [Unknown]
  - Gangrene [Unknown]
  - Diabetic foot [Unknown]
  - Extremity necrosis [Unknown]

NARRATIVE: CASE EVENT DATE: 2015
